FAERS Safety Report 8142935 (Version 2)
Quarter: 2013Q3

REPORT INFORMATION
  Report Type: Spontaneous
  Country: US (occurrence: US)
  Receive Date: 20110919
  Receipt Date: 20130905
  Transmission Date: 20140515
  Serious: Yes (Other)
  Sender: FDA-Public Use
  Company Number: US-ASTRAZENECA-2011SE53839

PATIENT
  Age: 82 Year
  Sex: Female

DRUGS (18)
  1. CRESTOR [Suspect]
     Indication: HYPERCHOLESTEROLAEMIA
     Route: 048
  2. CRESTOR [Suspect]
     Indication: HYPERCHOLESTEROLAEMIA
     Route: 048
     Dates: start: 2012
  3. CRESTOR [Suspect]
     Indication: HYPERCHOLESTEROLAEMIA
     Route: 048
     Dates: start: 2012, end: 2012
  4. CRESTOR [Suspect]
     Indication: HYPERCHOLESTEROLAEMIA
     Route: 048
     Dates: start: 2012, end: 20130825
  5. NITROFURANTOIN [Suspect]
     Indication: URINARY TRACT INFECTION
     Dates: start: 201303
  6. COREG [Concomitant]
     Indication: BLOOD PRESSURE ABNORMAL
     Route: 048
  7. COREG [Concomitant]
     Indication: BLOOD PRESSURE ABNORMAL
     Route: 048
  8. CATAPRESS PATCH [Concomitant]
     Indication: BLOOD PRESSURE ABNORMAL
     Route: 050
  9. SPIRINOLACTONE [Concomitant]
     Indication: BLOOD PRESSURE ABNORMAL
     Route: 048
  10. SPIRINOLACTONE [Concomitant]
     Indication: DIURETIC THERAPY
     Route: 048
  11. PLAVIX [Concomitant]
     Route: 048
  12. COUMADIN [Concomitant]
     Indication: ANTICOAGULANT THERAPY
     Route: 048
  13. COUMADIN [Concomitant]
     Indication: ANTICOAGULANT THERAPY
     Dosage: 3 MG DAILY 6 DAYS A WEEK
     Route: 048
  14. COUMADIN [Concomitant]
     Indication: ANTICOAGULANT THERAPY
     Route: 048
  15. FUROSEMIDE [Concomitant]
     Indication: DIURETIC THERAPY
     Route: 048
  16. FUROSEMIDE [Concomitant]
     Indication: DIURETIC THERAPY
     Route: 048
  17. APRESOLAM [Concomitant]
     Indication: ANXIETY
  18. TYLENOL [Concomitant]
     Indication: ARTHRITIS
     Dosage: 1 OR 2 TABS PRN

REACTIONS (24)
  - Activities of daily living impaired [Not Recovered/Not Resolved]
  - Atrial fibrillation [Unknown]
  - Restless legs syndrome [Recovering/Resolving]
  - Urinary tract infection [Unknown]
  - Fall [Unknown]
  - Pneumonia [Unknown]
  - Sinus disorder [Unknown]
  - Respiratory tract congestion [Unknown]
  - Dyspnoea [Unknown]
  - Aphagia [Unknown]
  - Pain [Not Recovered/Not Resolved]
  - Ageusia [Unknown]
  - Dysstasia [Unknown]
  - Sensory loss [Unknown]
  - Head injury [Unknown]
  - Muscular weakness [Not Recovered/Not Resolved]
  - Muscular weakness [Not Recovered/Not Resolved]
  - Sleep disorder due to general medical condition, insomnia type [Unknown]
  - Muscular weakness [Recovering/Resolving]
  - Pain in extremity [Recovering/Resolving]
  - Abdominal pain upper [Unknown]
  - Headache [Unknown]
  - Abdominal pain upper [Unknown]
  - Drug hypersensitivity [Unknown]
